FAERS Safety Report 22096784 (Version 5)
Quarter: 2023Q4

REPORT INFORMATION
  Report Type: Spontaneous
  Country: JP (occurrence: JP)
  Receive Date: 20230315
  Receipt Date: 20231016
  Transmission Date: 20240110
  Serious: Yes (Hospitalization, Other)
  Sender: FDA-Public Use
  Company Number: JP-MSD-M2023-09833

PATIENT
  Age: 76 Year
  Sex: Male

DRUGS (4)
  1. KEYTRUDA [Suspect]
     Active Substance: PEMBROLIZUMAB
     Indication: Renal cell carcinoma stage IV
     Dosage: 200 MILLIGRAM, Q3W
     Route: 041
     Dates: start: 20230126, end: 20230216
  2. LENVATINIB MESYLATE [Suspect]
     Active Substance: LENVATINIB MESYLATE
     Indication: Renal cell carcinoma stage IV
     Dosage: 20 MILLIGRAM, QD
     Route: 048
     Dates: start: 20230126, end: 20230228
  3. PAZOPANIB HYDROCHLORIDE [Suspect]
     Active Substance: PAZOPANIB HYDROCHLORIDE
     Indication: Renal cell carcinoma stage IV
     Dosage: UNK
     Route: 065
     Dates: start: 2023
  4. CABOMETYX [Suspect]
     Active Substance: CABOZANTINIB S-MALATE
     Indication: Renal cell carcinoma stage IV
     Dosage: UNK
     Route: 065
     Dates: start: 2023

REACTIONS (6)
  - Immune-mediated hypothyroidism [Recovered/Resolved]
  - Adrenal insufficiency [Recovered/Resolved]
  - Epilepsy [Recovered/Resolved]
  - Cerebral infarction [Recovered/Resolved]
  - Decreased appetite [Unknown]
  - Hepatic function abnormal [Unknown]

NARRATIVE: CASE EVENT DATE: 20230101
